FAERS Safety Report 6712721-6 (Version None)
Quarter: 2010Q2

REPORT INFORMATION
  Report Type: 
  Country: None (occurrence: None)
  Receive Date: 20100506
  Receipt Date: 20100421
  Transmission Date: 20101027
  Serious: Yes (Hospitalization)
  Sender: FDA-Public Use
  Company Number: CA-JNJFOC-20100501345

PATIENT
  Sex: Female
  Weight: 75 kg

DRUGS (2)
  1. REMICADE [Suspect]
     Indication: CROHN'S DISEASE
     Dosage: 2 DOSES
     Route: 042
  2. REMICADE [Suspect]
     Dosage: 0,2, 6, AND EVERY 8 WEEKS
     Route: 042

REACTIONS (3)
  - JOINT STIFFNESS [None]
  - PAIN [None]
  - PYREXIA [None]
